FAERS Safety Report 5258404-3 (Version None)
Quarter: 2007Q1

REPORT INFORMATION
  Report Type: 
  Country: None (occurrence: None)
  Receive Date: 20070306
  Receipt Date: 20070306
  Transmission Date: 20070707
  Serious: Yes (Life-Threatening, Disabling)
  Sender: FDA-Public Use
  Company Number: None

PATIENT
  Age: 65 Year
  Sex: Female
  Weight: 75.7507 kg

DRUGS (1)
  1. LIPITOR [Suspect]
     Indication: BLOOD CHOLESTEROL INCREASED
     Dates: start: 20060214, end: 20060221

REACTIONS (16)
  - ALOPECIA [None]
  - ARTHRALGIA [None]
  - ASTHENIA [None]
  - DERMATITIS [None]
  - DISTURBANCE IN ATTENTION [None]
  - DIZZINESS [None]
  - ERYTHEMA [None]
  - HYPOTONIA [None]
  - MYALGIA [None]
  - PAIN [None]
  - PAIN IN EXTREMITY [None]
  - POISONING [None]
  - PSORIASIS [None]
  - SEBORRHOEA [None]
  - SKIN TIGHTNESS [None]
  - THOUGHT BLOCKING [None]
